FAERS Safety Report 9006181 (Version 1)
Quarter: 2012Q4

REPORT INFORMATION
  Report Type: Spontaneous
  Country: US (occurrence: None)
  Receive Date: 20121226
  Receipt Date: 20121226
  Transmission Date: 20130627
  Serious: Yes (Hospitalization, Other)
  Sender: FDA-Public Use
  Company Number: ADR-2012-02275

PATIENT
  Age: 47 Year
  Sex: Male

DRUGS (6)
  1. BACLOFEN INTRATHECAL [Suspect]
  2. FENTANYL [Concomitant]
  3. HEART MEDICATION [Concomitant]
  4. MORPHINE [Concomitant]
  5. OXYCODONE [Concomitant]
  6. VALIUM [Concomitant]

REACTIONS (7)
  - Headache [None]
  - Pruritus [None]
  - Crying [None]
  - Feeling abnormal [None]
  - Neck pain [None]
  - Arthralgia [None]
  - Withdrawal syndrome [None]
